FAERS Safety Report 6614159-9 (Version None)
Quarter: 2010Q1

REPORT INFORMATION
  Report Type: 
  Country: None (occurrence: None)
  Receive Date: 20100303
  Receipt Date: 20100303
  Transmission Date: 20100710
  Serious: No
  Sender: FDA-Public Use
  Company Number: None

PATIENT
  Age: 45 Year
  Sex: Male

DRUGS (1)
  1. AMOXICILLIN AND CLAVULANATE POTASSIUM [Suspect]
     Indication: INFECTION
     Dates: start: 20090907, end: 20090914

REACTIONS (2)
  - JAUNDICE CHOLESTATIC [None]
  - LIVER INJURY [None]
